FAERS Safety Report 24396114 (Version 1)
Quarter: 2024Q4

REPORT INFORMATION
  Report Type: Spontaneous
  Country: US (occurrence: US)
  Receive Date: 20241004
  Receipt Date: 20241004
  Transmission Date: 20250114
  Serious: Yes (Other)
  Sender: CSL BEHRING
  Company Number: US-BEH-2024180796

PATIENT
  Age: 41 Year
  Sex: Female

DRUGS (3)
  1. PRIVIGEN [Suspect]
     Active Substance: HUMAN IMMUNOGLOBULIN G
     Indication: Pyoderma gangrenosum
     Dosage: 200 G, (50GRAMS IV DAILY X4 DAYS) EVERY 4 WEEKS
     Route: 042
     Dates: start: 20240916
  2. PRIVIGEN [Suspect]
     Active Substance: HUMAN IMMUNOGLOBULIN G
     Indication: Product use in unapproved indication
     Dosage: UNK
     Route: 065
  3. PRIVIGEN [Suspect]
     Active Substance: HUMAN IMMUNOGLOBULIN G
     Dosage: UNK
     Route: 065

REACTIONS (5)
  - Helicobacter infection [Unknown]
  - Headache [Unknown]
  - Vomiting [Unknown]
  - Nausea [Unknown]
  - Off label use [Unknown]

NARRATIVE: CASE EVENT DATE: 20240918
